FAERS Safety Report 25677994 (Version 1)
Quarter: 2025Q3

REPORT INFORMATION
  Report Type: Spontaneous
  Country: EU (occurrence: EU)
  Receive Date: 20250813
  Receipt Date: 20250813
  Transmission Date: 20251020
  Serious: Yes (Hospitalization)
  Sender: PFIZER
  Company Number: EU-MLMSERVICE-20250804-PI601384-00329-1

PATIENT
  Age: 83 Year
  Sex: Male

DRUGS (4)
  1. VANCOMYCIN [Suspect]
     Active Substance: VANCOMYCIN
     Indication: Antibiotic therapy
     Route: 048
  2. FENTANYL [Concomitant]
     Active Substance: FENTANYL
  3. ERTAPENEM [Concomitant]
     Active Substance: ERTAPENEM
     Indication: Pathogen resistance
  4. ERTAPENEM [Concomitant]
     Active Substance: ERTAPENEM
     Indication: Escherichia infection

REACTIONS (1)
  - Clostridium difficile colitis [Recovered/Resolved]
